FAERS Safety Report 6677280-5 (Version None)
Quarter: 2010Q2

REPORT INFORMATION
  Report Type: 
  Country: None (occurrence: None)
  Receive Date: 20100408
  Receipt Date: 20100326
  Transmission Date: 20101027
  Serious: Yes (Hospitalization)
  Sender: FDA-Public Use
  Company Number: 2010AP000671

PATIENT
  Age: 61 Year
  Sex: Female

DRUGS (4)
  1. ALPRAZOLAM [Suspect]
     Indication: INTENTIONAL SELF-INJURY
     Dosage: 20 DF;TAB;PO;QD
     Route: 048
     Dates: start: 20100204, end: 20100204
  2. TRIAZOLAM [Suspect]
     Indication: INTENTIONAL SELF-INJURY
     Dosage: 19 DF;TAB;PO;QD
     Route: 048
     Dates: start: 20100204, end: 20100204
  3. VENLAFAXINE HYDROCHLORIDE (VENLAFAXINE HYDRCHLORIDE) [Concomitant]
  4. LITHIUM CARBONATE [Concomitant]

REACTIONS (5)
  - BRADYPHRENIA [None]
  - HYPOKINESIA [None]
  - INTENTIONAL OVERDOSE [None]
  - INTENTIONAL SELF-INJURY [None]
  - SOPOR [None]
